FAERS Safety Report 18427938 (Version 1)
Quarter: 2020Q4

REPORT INFORMATION
  Report Type: Spontaneous
  Country: US (occurrence: US)
  Receive Date: 20201026
  Receipt Date: 20201026
  Transmission Date: 20210114
  Serious: No
  Sender: FDA-Public Use
  Company Number: US-ABBVIE-20K-163-3293060-00

PATIENT
  Sex: Female

DRUGS (2)
  1. NATUREMADE CALCIUM + MAGNESIUM WITH ZINC [Suspect]
     Active Substance: CALCIUM\MAGNESIUM\ZINC
     Indication: PRODUCT USED FOR UNKNOWN INDICATION
     Route: 065
  2. LUPRON [Suspect]
     Active Substance: LEUPROLIDE ACETATE
     Indication: ENDOMETRIOSIS
     Route: 065
     Dates: start: 2019

REACTIONS (4)
  - Postmenopause [Unknown]
  - Osteoporosis [Unknown]
  - Bone density increased [Unknown]
  - Hypermobility syndrome [Unknown]
